FAERS Safety Report 6412515-5 (Version None)
Quarter: 2009Q4

REPORT INFORMATION
  Report Type: 
  Country: None (occurrence: None)
  Receive Date: 20091023
  Receipt Date: 20090609
  Transmission Date: 20100525
  Serious: No
  Sender: FDA-Public Use
  Company Number: US-BRISTOL-MYERS SQUIBB COMPANY-14654974

PATIENT
  Age: 34 Year
  Sex: Female
  Weight: 50 kg

DRUGS (2)
  1. KENALOG-40 [Suspect]
     Indication: ASTHMA
     Dates: start: 20090323
  2. KENALOG-40 [Suspect]
     Indication: HYPERSENSITIVITY
     Dates: start: 20090323

REACTIONS (1)
  - SKIN ATROPHY [None]
